FAERS Safety Report 15075965 (Version 2)
Quarter: 2018Q3

REPORT INFORMATION
  Report Type: Spontaneous
  Country: US (occurrence: US)
  Receive Date: 20180627
  Receipt Date: 20180831
  Transmission Date: 20181010
  Serious: Yes (Other)
  Sender: FDA-Public Use
  Company Number: US-SA-2018SA167355

PATIENT
  Age: 67 Year
  Sex: Female
  Weight: 108 kg

DRUGS (8)
  1. CARBOPLATIN. [Concomitant]
     Active Substance: CARBOPLATIN
  2. CYTOXAN [Concomitant]
     Active Substance: CYCLOPHOSPHAMIDE
  3. PRILOSEC [OMEPRAZOLE] [Concomitant]
     Dosage: UNK
  4. HERCEPTIN [Concomitant]
     Active Substance: TRASTUZUMAB
  5. MELOXICAM. [Concomitant]
     Active Substance: MELOXICAM
     Dosage: UNK
  6. TAXOTERE [Suspect]
     Active Substance: DOCETAXEL
     Indication: BREAST CANCER FEMALE
     Dosage: 174 MG, Q3W
     Route: 042
     Dates: start: 20130129, end: 20130129
  7. TAXOTERE [Suspect]
     Active Substance: DOCETAXEL
     Dosage: 174 UNK
     Route: 042
     Dates: start: 20130515, end: 20130515
  8. NADOLOL. [Concomitant]
     Active Substance: NADOLOL

REACTIONS (2)
  - Alopecia [Recovering/Resolving]
  - Psychological trauma [Unknown]

NARRATIVE: CASE EVENT DATE: 20131115
